FAERS Safety Report 8355079-1 (Version None)
Quarter: 2012Q2

REPORT INFORMATION
  Report Type: 
  Country: None (occurrence: None)
  Receive Date: 20120510
  Receipt Date: 20120423
  Transmission Date: 20120825
  Serious: Yes (Other)
  Sender: FDA-Public Use
  Company Number: 2012000089

PATIENT
  Age: 60 Year
  Sex: Male

DRUGS (4)
  1. CAPOTEN [Concomitant]
  2. ACEON [Suspect]
     Indication: HYPERTENSION
     Dosage: 10 MG, QD, ORAL; 10 MG,QD, ORAL; 10 MG,QD, ORAL
     Route: 048
     Dates: start: 20111201, end: 20120101
  3. ACEON [Suspect]
     Indication: HYPERTENSION
     Dosage: 10 MG, QD, ORAL; 10 MG,QD, ORAL; 10 MG,QD, ORAL
     Route: 048
     Dates: start: 20120101, end: 20120301
  4. ACEON [Suspect]
     Indication: HYPERTENSION
     Dosage: 10 MG, QD, ORAL; 10 MG,QD, ORAL; 10 MG,QD, ORAL
     Route: 048
     Dates: start: 20100101

REACTIONS (4)
  - NAUSEA [None]
  - DRUG INEFFECTIVE [None]
  - BLOOD PRESSURE INCREASED [None]
  - HEADACHE [None]
